FAERS Safety Report 4348434-8 (Version None)
Quarter: 2004Q1

REPORT INFORMATION
  Report Type: 
  Country: None (occurrence: None)
  Receive Date: 20040325
  Receipt Date: 20040119
  Transmission Date: 20041129
  Serious: No
  Sender: FDA-Public Use
  Company Number: USA031153148

PATIENT
  Age: 71 Year
  Sex: Female

DRUGS (10)
  1. FORTEO [Suspect]
     Indication: OSTEOPOROSIS
     Dosage: 20 UG/DAY
     Dates: start: 20021218
  2. CALTRATE + D [Concomitant]
  3. VITAMIN D [Concomitant]
  4. STOOL SOFTENER (DOCUSATE SODIUM) [Concomitant]
  5. HYDROXYCHLOROQUINE SULFATE [Concomitant]
  6. METHOTREXATE [Concomitant]
  7. LEVOXYL [Concomitant]
  8. FOLIC ACID [Concomitant]
  9. PREVACID [Concomitant]
  10. MULTI-VITAMIN [Concomitant]

REACTIONS (1)
  - BLOOD CALCIUM INCREASED [None]
